FAERS Safety Report 14009693 (Version 1)
Quarter: 2017Q3

REPORT INFORMATION
  Report Type: Other
  Country: None (occurrence: CN)
  Receive Date: 20170925
  Receipt Date: 20170925
  Transmission Date: 20171128
  Serious: Yes (Hospitalization, Other)
  Sender: FDA-Public Use
  Company Number: CN-EXELTIS USA INC.-2027604

PATIENT
  Age: 29 Year
  Sex: Female

DRUGS (1)
  1. NUVESSA [Suspect]
     Active Substance: METRONIDAZOLE
     Indication: PRODUCT USED FOR UNKNOWN INDICATION

REACTIONS (1)
  - Liver injury [None]
